FAERS Safety Report 6127873-9 (Version None)
Quarter: 2009Q1

REPORT INFORMATION
  Report Type: 
  Country: None (occurrence: None)
  Receive Date: 20090323
  Receipt Date: 20080407
  Transmission Date: 20090719
  Serious: No
  Sender: FDA-Public Use
  Company Number: US-ABBOTT-08P-163-0446341-00

PATIENT
  Sex: Female
  Weight: 97.61 kg

DRUGS (2)
  1. ERYTHROCIN STEARATE FILMTAB [Suspect]
     Indication: NASOPHARYNGITIS
     Route: 048
     Dates: start: 20080328, end: 20080329
  2. ERYTHROCIN STEARATE FILMTAB [Suspect]
     Indication: UPPER RESPIRATORY TRACT INFECTION

REACTIONS (1)
  - ABDOMINAL PAIN [None]
